FAERS Safety Report 8006370-X (Version None)
Quarter: 2011Q4

REPORT INFORMATION
  Report Type: 
  Country: None (occurrence: None)
  Receive Date: 20111226
  Receipt Date: 20111216
  Transmission Date: 20120403
  Serious: Yes (Other)
  Sender: FDA-Public Use
  Company Number: PHEH2011US011888

PATIENT
  Sex: Male

DRUGS (8)
  1. CYMBALTA [Concomitant]
  2. PROSCAR [Concomitant]
  3. AFINITOR [Suspect]
     Dosage: 10 MG, DAILY
  4. LOSARTAN POTASSIUM [Concomitant]
  5. ACETYLSALICYLIC ACID SRT [Concomitant]
  6. CALCIUM [Concomitant]
  7. MULTI-VITAMINS [Concomitant]
  8. HYDROCORTISONE [Concomitant]

REACTIONS (3)
  - HYPOTENSION [None]
  - NAUSEA [None]
  - DIZZINESS [None]
